FAERS Safety Report 4775282-7 (Version None)
Quarter: 2005Q3

REPORT INFORMATION
  Report Type: 
  Country: None (occurrence: None)
  Receive Date: 20050921
  Receipt Date: 20050921
  Transmission Date: 20060218
  Serious: Yes (Hospitalization)
  Sender: FDA-Public Use
  Company Number: None

PATIENT
  Age: 20 Year
  Sex: Male
  Weight: 113.8529 kg

DRUGS (14)
  1. XIGRIS [Suspect]
     Indication: SEPSIS
     Dosage: 34 MCG/KG/HR CONTINUOUS IV DRIP
     Route: 041
     Dates: start: 20031114, end: 20031118
  2. AVELOX [Concomitant]
  3. VANCOMYCIN [Concomitant]
  4. AZTREONAM [Concomitant]
  5. AZITHROMYCIN [Concomitant]
  6. CIPROFLOXACIN [Concomitant]
  7. LINEZOLID [Concomitant]
  8. PHENYLEPHRINE [Concomitant]
  9. VASOPRESSIN [Concomitant]
  10. PANTOPRAZOLE [Concomitant]
  11. BACLOFEN [Concomitant]
  12. SERTRALINE HCL [Concomitant]
  13. ALBUTEROL/IPRATROPIUM NEBS [Concomitant]
  14. TIZANIDINE HCL [Concomitant]

REACTIONS (2)
  - HAEMORRHAGE [None]
  - RETROPERITONEAL HAEMORRHAGE [None]
